FAERS Safety Report 23408880 (Version 1)
Quarter: 2024Q1

REPORT INFORMATION
  Report Type: Spontaneous
  Country: US (occurrence: None)
  Receive Date: 20240115
  Receipt Date: 20240115
  Transmission Date: 20240410
  Serious: No
  Sender: FDA-Public Use
  Company Number: None

PATIENT

DRUGS (2)
  1. ISOPROTERENOL SULFATE [Suspect]
     Active Substance: ISOPROTERENOL SULFATE
  2. ISOPROTERENOL HYDROCHLORIDE [Suspect]
     Active Substance: ISOPROTERENOL HYDROCHLORIDE

REACTIONS (2)
  - Product label confusion [None]
  - Product expiration date issue [None]
